FAERS Safety Report 8672947 (Version 6)
Quarter: 2014Q3

REPORT INFORMATION
  Report Type: Spontaneous
  Country: US (occurrence: US)
  Receive Date: 20120719
  Receipt Date: 20140722
  Transmission Date: 20150326
  Serious: Yes (Hospitalization, Other)
  Sender: FDA-Public Use
  Company Number: US-009507513-2012SP005878

PATIENT
  Sex: Female
  Weight: 77.11 kg

DRUGS (1)
  1. NUVARING [Suspect]
     Active Substance: ETHINYL ESTRADIOL\ETONOGESTREL
     Indication: CONTRACEPTION
     Dosage: UNK
     Route: 067
     Dates: start: 200901, end: 20090211

REACTIONS (18)
  - Papilloma viral infection [Unknown]
  - Lung infiltration [Unknown]
  - Pneumonia [Not Recovered/Not Resolved]
  - Anger [Unknown]
  - Muscle spasms [Unknown]
  - Pneumonia necrotising [Unknown]
  - Chronic obstructive pulmonary disease [Unknown]
  - Urticaria [Unknown]
  - Plantar fasciitis [Not Recovered/Not Resolved]
  - Cough [Unknown]
  - Asthma [Unknown]
  - Treatment noncompliance [Unknown]
  - Back pain [Unknown]
  - Hypertension [Unknown]
  - Abnormal loss of weight [Unknown]
  - Exostosis [Unknown]
  - Pulmonary embolism [Unknown]
  - Haemoptysis [Unknown]

NARRATIVE: CASE EVENT DATE: 20090130
